FAERS Safety Report 5858285-0 (Version None)
Quarter: 2008Q3

REPORT INFORMATION
  Report Type: 
  Country: None (occurrence: None)
  Receive Date: 20080826
  Receipt Date: 20080820
  Transmission Date: 20090109
  Serious: Yes (Death, Hospitalization)
  Sender: FDA-Public Use
  Company Number: A0744341A

PATIENT
  Age: 50 Year
  Sex: Male
  Weight: 100 kg

DRUGS (1)
  1. AVANDIA [Suspect]
     Route: 048

REACTIONS (2)
  - DEATH [None]
  - VASCULAR GRAFT [None]
